FAERS Safety Report 6367983-4 (Version None)
Quarter: 2009Q3

REPORT INFORMATION
  Report Type: 
  Country: None (occurrence: None)
  Receive Date: 20090910
  Receipt Date: 20090831
  Transmission Date: 20100115
  Serious: Yes (Other)
  Sender: FDA-Public Use
  Company Number: AEUSA200900234

PATIENT
  Age: 48 Year
  Sex: Male
  Weight: 107.5025 kg

DRUGS (3)
  1. GAMUNEX [Suspect]
     Indication: POLYMYOSITIS
     Dosage: 42 GM; BIW; IV
     Route: 042
     Dates: start: 20090709
  2. GAMUNEX [Suspect]
  3. GAMMAGARD S/D [Concomitant]

REACTIONS (6)
  - BALANCE DISORDER [None]
  - BLOOD CREATINE PHOSPHOKINASE INCREASED [None]
  - CONDITION AGGRAVATED [None]
  - DYSPHAGIA [None]
  - MUSCULAR WEAKNESS [None]
  - POLYMYOSITIS [None]
